FAERS Safety Report 10429878 (Version 2)
Quarter: 2014Q4

REPORT INFORMATION
  Report Type: Spontaneous
  Country: DE (occurrence: DE)
  Receive Date: 20140904
  Receipt Date: 20141003
  Transmission Date: 20150528
  Serious: Yes (Congenital Anomaly, Other)
  Sender: FDA-Public Use
  Company Number: DE-009507513-1408DEU016133

PATIENT
  Age: 1 Day
  Sex: Male
  Weight: .89 kg

DRUGS (8)
  1. VITAVERLAN [Concomitant]
     Dosage: 0.4 [MG/D]
     Route: 064
     Dates: start: 20130117, end: 20130214
  2. REMERGIL [Suspect]
     Active Substance: MIRTAZAPINE
     Dosage: 30 MG/D, 14.2-31.5 GESTATIONAL WEEK
     Route: 064
     Dates: start: 20130226, end: 20130628
  3. FAMPYRA [Suspect]
     Active Substance: DALFAMPRIDINE
     Dosage: 10 MG, QD
     Route: 064
     Dates: start: 20121118, end: 20131210
  4. GABAPENTIN. [Suspect]
     Active Substance: GABAPENTIN
     Dosage: 3200 MG/D, UNTIL GESTATIONAL WEEK 3+1
     Route: 064
     Dates: start: 20121118, end: 20121210
  5. GABAPENTIN. [Suspect]
     Active Substance: GABAPENTIN
     Dosage: 1200 MG/D, FROM GESTATIONAL WEEK 14 + 2 DAYS UNTIL DELIVERY
     Dates: start: 20130226, end: 20130628
  6. ASS 100 [Concomitant]
     Active Substance: ASPIRIN
     Dosage: 100 [MG/D] (100 MG, 1 DAY)
     Route: 064
     Dates: start: 20130412, end: 20130628
  7. TYSABRI [Suspect]
     Active Substance: NATALIZUMAB
     Dosage: 300 MG, QW
     Route: 064
     Dates: start: 2008, end: 20121206
  8. CLEXANE (ENOXAPARIN SODIUM) [Concomitant]
     Active Substance: ENOXAPARIN SODIUM
     Dosage: 40 MG, QD
     Route: 064
     Dates: start: 20121118, end: 20130128

REACTIONS (5)
  - Neonatal respiratory distress syndrome [Recovered/Resolved]
  - Small for dates baby [Recovering/Resolving]
  - Hypospadias [Not Recovered/Not Resolved]
  - Atrial septal defect [Unknown]
  - Feeding disorder neonatal [Recovered/Resolved]

NARRATIVE: CASE EVENT DATE: 20130628
